FAERS Safety Report 9423990 (Version 1)
Quarter: 2013Q3

REPORT INFORMATION
  Report Type: Spontaneous
  Country: US (occurrence: US)
  Receive Date: 20130729
  Receipt Date: 20130729
  Transmission Date: 20140515
  Serious: Yes (Other)
  Sender: FDA-Public Use
  Company Number: US-ROCHE-1209629

PATIENT
  Sex: Female

DRUGS (2)
  1. ACCUTANE [Suspect]
     Indication: ACNE CYSTIC
     Dosage: THERAPY DISCONTINUED.
     Route: 065
     Dates: start: 1991
  2. ACCUTANE [Suspect]
     Route: 065
     Dates: start: 200108, end: 200208

REACTIONS (7)
  - Inflammatory bowel disease [Unknown]
  - Cholelithiasis [Unknown]
  - Crohn^s disease [Unknown]
  - Irritable bowel syndrome [Unknown]
  - Anal fissure [Unknown]
  - Haemorrhoids [Unknown]
  - Depression [Unknown]
